FAERS Safety Report 20231791 (Version 1)
Quarter: 2021Q4

REPORT INFORMATION
  Report Type: Spontaneous
  Country: US (occurrence: None)
  Receive Date: 20211223
  Receipt Date: 20211223
  Transmission Date: 20220303
  Serious: Yes (Other)
  Sender: FDA-Public Use
  Company Number: None

PATIENT
  Age: 42 Year
  Sex: Female
  Weight: 74.8 kg

DRUGS (1)
  1. VUMERITY [Suspect]
     Active Substance: DIROXIMEL FUMARATE
     Indication: Multiple sclerosis
     Dosage: FREQUENCY : TWICE A DAY;?
     Route: 048
     Dates: start: 20211220, end: 20211220

REACTIONS (6)
  - Flushing [None]
  - Erythema [None]
  - Pruritus [None]
  - Oral discomfort [None]
  - Mouth swelling [None]
  - Oropharyngeal discomfort [None]

NARRATIVE: CASE EVENT DATE: 20211220
